FAERS Safety Report 5788501-5 (Version None)
Quarter: 2008Q2

REPORT INFORMATION
  Report Type: 
  Country: None (occurrence: None)
  Receive Date: 20080625
  Receipt Date: 20080625
  Transmission Date: 20081010
  Serious: Yes (Hospitalization, Disabling)
  Sender: FDA-Public Use
  Company Number: None

PATIENT
  Age: 90 Year
  Weight: 51.2565 kg

DRUGS (1)
  1. DIGITEK [Suspect]
     Indication: CARDIAC DISORDER
     Dosage: 1 DAY
     Dates: start: 20080325

REACTIONS (6)
  - ASTHENIA [None]
  - DYSSTASIA [None]
  - HEART RATE DECREASED [None]
  - HEART RATE IRREGULAR [None]
  - HEMIPARESIS [None]
  - HYPOTENSION [None]
